FAERS Safety Report 9272804 (Version 1)
Quarter: 2013Q2

REPORT INFORMATION
  Report Type: Spontaneous
  Country: IT (occurrence: IT)
  Receive Date: 20130506
  Receipt Date: 20130506
  Transmission Date: 20140414
  Serious: Yes (Death)
  Sender: FDA-Public Use
  Company Number: IT-ASTRAZENECA-2013SE30852

PATIENT
  Age: 26 Year
  Sex: Male

DRUGS (1)
  1. LIDOCAINE [Suspect]
     Route: 042

REACTIONS (2)
  - Overdose [Fatal]
  - Toxicity to various agents [Fatal]
